FAERS Safety Report 5724873-5 (Version None)
Quarter: 2008Q2

REPORT INFORMATION
  Report Type: 
  Country: None (occurrence: None)
  Receive Date: 20080501
  Receipt Date: 20080424
  Transmission Date: 20081010
  Serious: Yes (Death)
  Sender: FDA-Public Use
  Company Number: US-AVENTIS-200811869EU

PATIENT
  Age: 77 Year
  Sex: Female

DRUGS (26)
  1. ENOXAPARIN SODIUM [Suspect]
     Indication: THROMBOSIS PROPHYLAXIS
     Route: 058
     Dates: start: 20080331, end: 20080405
  2. PLACEBO [Suspect]
     Indication: THROMBOSIS PROPHYLAXIS
     Route: 048
     Dates: start: 20080331, end: 20080413
  3. ACETAMINOPHEN [Concomitant]
  4. MEPERIDINE HCL [Concomitant]
     Dates: end: 20080329
  5. MELOXICAM [Concomitant]
     Dates: end: 20080329
  6. FLURAZEPAM [Concomitant]
  7. DIAZEPAM [Concomitant]
  8. VENLAFAXINE HCL [Concomitant]
     Dates: end: 20080329
  9. SYNTHROID [Concomitant]
     Dates: start: 19970101
  10. PREDNISONE [Concomitant]
  11. HEPARIN [Concomitant]
     Dates: start: 20080330, end: 20080331
  12. LEVAQUIN [Concomitant]
     Dates: start: 20080330, end: 20080404
  13. COMBIVENT                          /01033501/ [Concomitant]
     Dates: start: 20080330, end: 20080405
  14. HUMULIN R [Concomitant]
     Dates: start: 20080330
  15. METFORMIN HCL [Concomitant]
     Dates: start: 20080331
  16. GABAPENTIN [Concomitant]
     Dates: start: 20080331
  17. GRAVOL TAB [Concomitant]
     Dates: start: 20080330
  18. HYDROMORPHONE HCL [Concomitant]
     Dates: start: 20080330
  19. ASPIRIN [Concomitant]
     Dates: start: 20080402
  20. METOPROLOL TARTRATE [Concomitant]
     Dates: start: 20080404
  21. MOTILIUM [Concomitant]
     Dates: start: 20080407
  22. PREVACID [Concomitant]
     Dates: start: 20080407
  23. NITROGLYCERIN [Concomitant]
     Dates: start: 20080402
  24. SPIRIVA [Concomitant]
     Dates: start: 20080405
  25. ALBUTEROL [Concomitant]
     Dates: start: 20080405
  26. DIAMICRON [Concomitant]
     Dates: start: 20080330, end: 20080404

REACTIONS (1)
  - SUDDEN DEATH [None]
